FAERS Safety Report 14125565 (Version 3)
Quarter: 2017Q4

REPORT INFORMATION
  Report Type: Spontaneous
  Country: TR (occurrence: TR)
  Receive Date: 20171025
  Receipt Date: 20171222
  Transmission Date: 20180321
  Serious: Yes (Life-Threatening, Hospitalization, Other)
  Sender: FDA-Public Use
  Company Number: TR-JNJFOC-20171028139

PATIENT
  Age: 67 Year
  Sex: Female

DRUGS (9)
  1. DESAL [Concomitant]
     Active Substance: FUROSEMIDE
     Indication: CARDIAC FAILURE
     Route: 048
  2. XARELTO [Suspect]
     Active Substance: RIVAROXABAN
     Indication: ARRHYTHMIA
     Route: 048
     Dates: start: 20151006, end: 20171011
  3. DILATREND [Concomitant]
     Active Substance: CARVEDILOL
     Indication: CARDIAC FAILURE
     Route: 048
  4. DIGOXIN. [Concomitant]
     Active Substance: DIGOXIN
     Indication: CARDIAC FAILURE
     Route: 048
  5. DILATREND [Concomitant]
     Active Substance: CARVEDILOL
     Indication: ARRHYTHMIA
     Route: 048
  6. XARELTO [Suspect]
     Active Substance: RIVAROXABAN
     Indication: CARDIAC FAILURE
     Route: 048
     Dates: start: 20151006, end: 20171011
  7. DELIX PROTECT [Concomitant]
     Indication: HYPERTENSION
     Route: 048
  8. DIGOXIN. [Concomitant]
     Active Substance: DIGOXIN
     Indication: ARRHYTHMIA
     Route: 048
  9. DESAL [Concomitant]
     Active Substance: FUROSEMIDE
     Indication: ARRHYTHMIA
     Route: 048

REACTIONS (20)
  - Cardiac arrest [Unknown]
  - Cerebral thrombosis [Unknown]
  - Epistaxis [Recovered/Resolved]
  - Gastric haemorrhage [Recovered/Resolved]
  - Splenic rupture [Unknown]
  - Wound [Unknown]
  - Prosopagnosia [Unknown]
  - Cerebral disorder [Unknown]
  - Postoperative hernia [Unknown]
  - Eating disorder [Unknown]
  - Bedridden [Unknown]
  - Amnesia [Unknown]
  - Venous injury [Unknown]
  - Feeling abnormal [Unknown]
  - Mental impairment [Unknown]
  - Mouth haemorrhage [Recovered/Resolved]
  - Infection [Recovered/Resolved]
  - Suture rupture [Unknown]
  - Fall [Unknown]
  - Internal haemorrhage [Recovered/Resolved]

NARRATIVE: CASE EVENT DATE: 2017
